FAERS Safety Report 23360688 (Version 1)
Quarter: 2024Q1

REPORT INFORMATION
  Report Type: Spontaneous
  Country: DE (occurrence: DE)
  Receive Date: 20240103
  Receipt Date: 20240103
  Transmission Date: 20240410
  Serious: Yes (Other)
  Sender: FDA-Public Use
  Company Number: DE-SUN PHARMACEUTICAL INDUSTRIES LTD-2023R1-425931

PATIENT
  Age: 60 Year
  Sex: Male

DRUGS (1)
  1. HYDROXYCHLOROQUINE [Suspect]
     Active Substance: HYDROXYCHLOROQUINE
     Indication: Subacute cutaneous lupus erythematosus
     Dosage: UNK
     Route: 065

REACTIONS (1)
  - Treatment failure [Unknown]
